FAERS Safety Report 25101083 (Version 4)
Quarter: 2025Q3

REPORT INFORMATION
  Report Type: Report from Study
  Country: US (occurrence: US)
  Receive Date: 20250320
  Receipt Date: 20250714
  Transmission Date: 20251021
  Serious: No
  Sender: AVERITAS
  Company Number: US-GRUNENTHAL-2025-104230

PATIENT
  Age: 57 Year
  Sex: Female

DRUGS (3)
  1. QUTENZA [Suspect]
     Active Substance: CAPSAICIN
     Indication: Diabetic neuropathy
     Route: 061
     Dates: start: 20241213, end: 20241213
  2. QUTENZA [Suspect]
     Active Substance: CAPSAICIN
     Route: 061
     Dates: start: 20250311, end: 20250311
  3. QUTENZA [Suspect]
     Active Substance: CAPSAICIN
     Route: 061
     Dates: start: 20250623, end: 20250623

REACTIONS (5)
  - Pain [Unknown]
  - Paraesthesia [Unknown]
  - Feeling hot [Unknown]
  - Feeling hot [Unknown]
  - Feeling hot [Unknown]

NARRATIVE: CASE EVENT DATE: 20241213
